FAERS Safety Report 11672647 (Version 1)
Quarter: 2015Q4

REPORT INFORMATION
  Report Type: Spontaneous
  Country: US (occurrence: US)
  Receive Date: 20151028
  Receipt Date: 20151028
  Transmission Date: 20160304
  Serious: Yes (Hospitalization)
  Sender: FDA-Public Use
  Company Number: US-ASTRAZENECA-2015SF02921

PATIENT
  Age: 23561 Day
  Sex: Male
  Weight: 134.7 kg

DRUGS (30)
  1. LEXAPRO [Concomitant]
     Active Substance: ESCITALOPRAM OXALATE
     Dosage: 20 MG ORAL TABLET
  2. LEVOTHYROXINE SODIUM. [Concomitant]
     Active Substance: LEVOTHYROXINE SODIUM
     Dosage: 2 TABS MON/WED/FRI AND 1 TAB EVERY DAY
     Route: 048
  3. SPIRONOLACTONE. [Concomitant]
     Active Substance: SPIRONOLACTONE
     Route: 048
  4. SOTALOL HYDROCHLORIDE. [Concomitant]
     Active Substance: SOTALOL HYDROCHLORIDE
     Dosage: 120 MG 2 TABLETS TWICE A DAY
     Route: 048
  5. CARVEDILOL. [Concomitant]
     Active Substance: CARVEDILOL
     Dosage: 25 MG ORAL TABLET
  6. CRESTOR [Suspect]
     Active Substance: ROSUVASTATIN CALCIUM
     Route: 048
  7. ULTRAM [Concomitant]
     Active Substance: TRAMADOL HYDROCHLORIDE
     Dosage: AS NEEDED
     Route: 048
  8. WARFARIN SODIUM. [Concomitant]
     Active Substance: WARFARIN SODIUM
     Dosage: 3 TABLETS BY MOUTH ONCE DAILY OR AS DIRECTED
     Route: 048
  9. ASPIRIN. [Concomitant]
     Active Substance: ASPIRIN
  10. ZANTAC [Concomitant]
     Active Substance: RANITIDINE HYDROCHLORIDE
     Route: 048
  11. OCUVITE [Concomitant]
     Active Substance: VITAMINS
     Dosage: DAILY
     Route: 048
  12. METFORMIN HYDROCHLORIDE. [Concomitant]
     Active Substance: METFORMIN HYDROCHLORIDE
  13. PLAVIX [Concomitant]
     Active Substance: CLOPIDOGREL BISULFATE
     Dosage: 75 MG ORAL TABLET
  14. OMEGA-3 ACIDS [Concomitant]
     Active Substance: OMEGA-3 FATTY ACIDS
     Dosage: 4 CAPSULES DAILY
  15. LISINOPRIL. [Suspect]
     Active Substance: LISINOPRIL
     Route: 048
  16. ALPRAZOLAM. [Concomitant]
     Active Substance: ALPRAZOLAM
     Indication: NERVOUS SYSTEM DISORDER
     Dosage: TWICE A DAY IF NEEDED
     Route: 048
  17. PROAIR HFA [Concomitant]
     Active Substance: ALBUTEROL SULFATE
  18. CLOBETASOL PROPIONATE. [Concomitant]
     Active Substance: CLOBETASOL PROPIONATE
     Dosage: 0.05 %
  19. MAGNESIUM OXIDE. [Concomitant]
     Active Substance: MAGNESIUM OXIDE
     Route: 048
  20. RANEXA [Concomitant]
     Active Substance: RANOLAZINE
     Route: 048
  21. VITAMIN D [Concomitant]
     Active Substance: CHOLECALCIFEROL
     Dosage: 2000 UNIT ORAL TABLET
  22. NITROSTAT [Concomitant]
     Active Substance: NITROGLYCERIN
     Dosage: 0.4 MG
     Route: 060
  23. HUMULIN R [Concomitant]
     Active Substance: INSULIN HUMAN
     Dosage: 500 UNIT/ML, TWICE A DAY
     Route: 058
  24. TORSEMIDE. [Concomitant]
     Active Substance: TORSEMIDE
     Route: 048
  25. MUPIROCIN. [Concomitant]
     Active Substance: MUPIROCIN
  26. FOLBIC [Concomitant]
     Active Substance: CYANOCOBALAMIN\FOLIC ACID\PYRIDOXINE
     Dosage: 2.5-25-2 MG DAILY
     Route: 048
  27. LYRICA [Concomitant]
     Active Substance: PREGABALIN
     Dosage: TWO TIMES A DAY
     Route: 048
  28. VOLTAREN [Concomitant]
     Active Substance: DICLOFENAC SODIUM
  29. LIPITOR [Concomitant]
     Active Substance: ATORVASTATIN CALCIUM
     Dosage: L TABLET DAILY
     Route: 048
  30. FENOFIBRATE. [Concomitant]
     Active Substance: FENOFIBRATE
     Dosage: 130 MG ORAL CAPSULE

REACTIONS (4)
  - Ventricular arrhythmia [Unknown]
  - Presyncope [Unknown]
  - Muscular weakness [Unknown]
  - Drug intolerance [Unknown]

NARRATIVE: CASE EVENT DATE: 20150916
